FAERS Safety Report 7246323-2 (Version None)
Quarter: 2011Q1

REPORT INFORMATION
  Report Type: 
  Country: None (occurrence: None)
  Receive Date: 20110126
  Receipt Date: 20101217
  Transmission Date: 20110831
  Serious: Yes (Death, Hospitalization, Other)
  Sender: FDA-Public Use
  Company Number: PHHY2010US86339

PATIENT
  Age: 80 Year
  Weight: 100 kg

DRUGS (20)
  1. SOLU-MEDROL [Concomitant]
  2. ASPIRIN [Concomitant]
  3. ZANTAC [Concomitant]
  4. PLATELETS [Concomitant]
  5. PROTON PUMP INHIBITORS [Concomitant]
     Route: 042
  6. PREDNISOLONE [Concomitant]
  7. GLYBURIDE [Concomitant]
  8. FEMARA [Suspect]
     Dosage: 2.5 MG
     Dates: start: 20070101
  9. NPLATE [Concomitant]
     Dosage: 2 UG/KG QWK
     Route: 058
     Dates: start: 20091204, end: 20100601
  10. STEROID [Concomitant]
     Indication: CHRONIC OBSTRUCTIVE PULMONARY DISEASE
  11. CALCIUM [Concomitant]
  12. NPLATE [Concomitant]
     Dosage: 1 UG/KG QWK
     Dates: start: 20091204, end: 20091204
  13. AVELOX [Concomitant]
     Indication: CHRONIC OBSTRUCTIVE PULMONARY DISEASE
  14. IMMUNE GLOBULIN NOS [Concomitant]
     Route: 042
  15. COZAAR [Concomitant]
  16. COMBIVENT [Concomitant]
  17. OXYGEN [Concomitant]
  18. ERGOCALCIFEROL [Concomitant]
  19. LOVENOX [Concomitant]
  20. LASIX [Concomitant]
     Dosage: ONCE DAILY

REACTIONS (15)
  - GASTROINTESTINAL HAEMORRHAGE [None]
  - DEEP VEIN THROMBOSIS [None]
  - DIVERTICULUM [None]
  - THROMBOCYTOPENIA [None]
  - OESOPHAGEAL CANDIDIASIS [None]
  - CARDIAC FAILURE CONGESTIVE [None]
  - OEDEMA PERIPHERAL [None]
  - PNEUMONIA [None]
  - DEATH [None]
  - THROMBOCYTOPENIC PURPURA [None]
  - HYPOXIA [None]
  - ATELECTASIS [None]
  - PULMONARY EMBOLISM [None]
  - CHRONIC OBSTRUCTIVE PULMONARY DISEASE [None]
  - CELLULITIS [None]
